FAERS Safety Report 7880435-5 (Version None)
Quarter: 2011Q4

REPORT INFORMATION
  Report Type: 
  Country: None (occurrence: None)
  Receive Date: 20111101
  Receipt Date: 20111025
  Transmission Date: 20120403
  Serious: Yes (Disabling)
  Sender: FDA-Public Use
  Company Number: PHEH2011US03764

PATIENT
  Sex: Female

DRUGS (1)
  1. GILENYA [Suspect]
     Indication: MULTIPLE SCLEROSIS
     Dosage: 0.5 MG, QD
     Route: 048
     Dates: start: 20110422, end: 20110911

REACTIONS (6)
  - NAUSEA [None]
  - PAIN IN EXTREMITY [None]
  - HEADACHE [None]
  - DECREASED APPETITE [None]
  - VOMITING [None]
  - BACK PAIN [None]
